FAERS Safety Report 12277528 (Version 3)
Quarter: 2016Q2

REPORT INFORMATION
  Report Type: Spontaneous
  Country: None (occurrence: US)
  Receive Date: 20160418
  Receipt Date: 20160606
  Transmission Date: 20160815
  Serious: No
  Sender: FDA-Public Use
  Company Number: ADR-2015-01038

PATIENT
  Age: 64 Year
  Sex: Male

DRUGS (1)
  1. BACLOFEN. [Suspect]
     Active Substance: BACLOFEN
     Route: 037

REACTIONS (3)
  - Therapeutic response unexpected [Unknown]
  - Muscle spasms [Unknown]
  - Pain [Unknown]
